FAERS Safety Report 4454550-2 (Version None)
Quarter: 2004Q3

REPORT INFORMATION
  Report Type: 
  Country: None (occurrence: None)
  Receive Date: 20040823
  Receipt Date: 20040629
  Transmission Date: 20050211
  Serious: Yes (Hospitalization)
  Sender: FDA-Public Use
  Company Number: CIP04001213

PATIENT
  Age: 40 Year
  Sex: Female
  Weight: 121.5 kg

DRUGS (4)
  1. ASACOL [Suspect]
     Indication: COLITIS ULCERATIVE
     Dosage: 800 MG THREE TIMES DAILY, ORAL
     Route: 048
     Dates: start: 20040321, end: 20040525
  2. SYNTHROID [Concomitant]
  3. ORTHO CYCLEN-21 [Concomitant]
  4. LOMOTIL [Concomitant]

REACTIONS (5)
  - ABDOMINAL PAIN [None]
  - ABDOMINAL PAIN UPPER [None]
  - LIPASE INCREASED [None]
  - NAUSEA [None]
  - PANCREATITIS [None]
